FAERS Safety Report 23739978 (Version 1)
Quarter: 2024Q2

REPORT INFORMATION
  Report Type: Spontaneous
  Country: US (occurrence: US)
  Receive Date: 20240414
  Receipt Date: 20240414
  Transmission Date: 20240715
  Serious: Yes (Other)
  Sender: FDA-Public Use
  Company Number: US-JNJFOC-20240419709

PATIENT
  Age: 53 Year
  Sex: Female

DRUGS (1)
  1. STELARA [Suspect]
     Active Substance: USTEKINUMAB
     Indication: Crohn^s disease
     Route: 058
     Dates: start: 20221230

REACTIONS (4)
  - Crohn^s disease [Not Recovered/Not Resolved]
  - Hypertension [Unknown]
  - Pruritus [Unknown]
  - Drug ineffective [Unknown]
